FAERS Safety Report 5850708-6 (Version None)
Quarter: 2008Q3

REPORT INFORMATION
  Report Type: 
  Country: None (occurrence: None)
  Receive Date: 20080820
  Receipt Date: 20080818
  Transmission Date: 20090109
  Serious: Yes (Other)
  Sender: FDA-Public Use
  Company Number: DE-BRISTOL-MYERS SQUIBB COMPANY-14302525

PATIENT
  Sex: Male

DRUGS (1)
  1. STOCRIN [Suspect]
     Indication: HIV INFECTION
     Dosage: FIRST-LINE THERAPY

REACTIONS (5)
  - HEADACHE [None]
  - MALAISE [None]
  - NAUSEA [None]
  - VIRAL LOAD INCREASED [None]
  - WEIGHT DECREASED [None]
